FAERS Safety Report 7906564-5 (Version None)
Quarter: 2011Q4

REPORT INFORMATION
  Report Type: 
  Country: None (occurrence: None)
  Receive Date: 20111110
  Receipt Date: 20111101
  Transmission Date: 20120403
  Serious: Yes (Other)
  Sender: FDA-Public Use
  Company Number: US-ASTRAZENECA-2011SE63029

PATIENT
  Age: 58 Year
  Sex: Female

DRUGS (1)
  1. SEROQUEL XR [Suspect]
     Route: 048

REACTIONS (4)
  - AGORAPHOBIA [None]
  - SYSTEMIC LUPUS ERYTHEMATOSUS [None]
  - DECREASED APPETITE [None]
  - DEPRESSION [None]
